FAERS Safety Report 6465194-5 (Version None)
Quarter: 2009Q4

REPORT INFORMATION
  Report Type: 
  Country: None (occurrence: None)
  Receive Date: 20091201
  Receipt Date: 20091027
  Transmission Date: 20100525
  Serious: No
  Sender: FDA-Public Use
  Company Number: US-AMGEN-COG345006

PATIENT
  Sex: Female
  Weight: 56 kg

DRUGS (3)
  1. ENBREL [Suspect]
     Indication: ANKYLOSING SPONDYLITIS
     Route: 058
     Dates: start: 20090407, end: 20090501
  2. TYLENOL W/ CODEINE [Concomitant]
     Dates: start: 20090409
  3. NABUMETONE [Concomitant]
     Dates: start: 20081112

REACTIONS (4)
  - HYPOAESTHESIA [None]
  - PAIN [None]
  - PAIN IN EXTREMITY [None]
  - PARAESTHESIA [None]
